FAERS Safety Report 25852449 (Version 1)
Quarter: 2025Q3

REPORT INFORMATION
  Report Type: Spontaneous
  Country: IN (occurrence: IN)
  Receive Date: 20250926
  Receipt Date: 20250926
  Transmission Date: 20251021
  Serious: Yes (Other)
  Sender: ACCORD
  Company Number: IN-Accord-503976

PATIENT
  Age: 29 Year
  Sex: Female

DRUGS (2)
  1. SERTRALINE [Suspect]
     Active Substance: SERTRALINE HYDROCHLORIDE
     Indication: Mood altered
  2. PROPRANOLOL [Concomitant]
     Active Substance: PROPRANOLOL HYDROCHLORIDE
     Indication: Somatic symptom disorder

REACTIONS (14)
  - Maternal exposure during pregnancy [Unknown]
  - Withdrawal syndrome [Unknown]
  - Sinus tachycardia [Recovered/Resolved]
  - Chest discomfort [Recovering/Resolving]
  - Palpitations [Recovering/Resolving]
  - Fear of death [Recovering/Resolving]
  - Dizziness [Recovering/Resolving]
  - Emotional distress [Recovering/Resolving]
  - Dyspnoea [Recovering/Resolving]
  - Paraesthesia [Recovering/Resolving]
  - Panic reaction [Recovering/Resolving]
  - Hyperhidrosis [Recovering/Resolving]
  - Crying [Recovering/Resolving]
  - Depersonalisation/derealisation disorder [Recovering/Resolving]
